FAERS Safety Report 8465626-7 (Version None)
Quarter: 2012Q2

REPORT INFORMATION
  Report Type: 
  Country: None (occurrence: None)
  Receive Date: 20120626
  Receipt Date: 20120618
  Transmission Date: 20120825
  Serious: Yes (Hospitalization)
  Sender: FDA-Public Use
  Company Number: US-BAYER-2012-061264

PATIENT
  Age: 44 Year
  Sex: Female
  Weight: 76.19 kg

DRUGS (5)
  1. DROSPIRENONE AND ETHINYL ESTRADIOL [Suspect]
  2. LEVOTHYROXINE [Concomitant]
     Dosage: 100 MG, DAILY
     Route: 048
     Dates: start: 20030101
  3. SYNTHROID [Concomitant]
  4. YASMIN [Suspect]
  5. YAZ [Suspect]

REACTIONS (1)
  - DEEP VEIN THROMBOSIS [None]
